FAERS Safety Report 6073581-2 (Version None)
Quarter: 2009Q1

REPORT INFORMATION
  Report Type: 
  Country: None (occurrence: None)
  Receive Date: 20090211
  Receipt Date: 20090129
  Transmission Date: 20090719
  Serious: Yes (Hospitalization, Other)
  Sender: FDA-Public Use
  Company Number: US-PFIZER INC-2008085593

PATIENT
  Sex: Male
  Weight: 100 kg

DRUGS (22)
  1. CHANTIX [Suspect]
     Indication: SMOKING CESSATION THERAPY
     Dates: start: 20070101, end: 20080101
  2. OXYCONTIN [Suspect]
     Indication: NEURALGIA
     Route: 048
     Dates: start: 20060101
  3. OXYCODONE HCL [Suspect]
     Indication: NEURALGIA
     Dosage: TDD: 30 TO 40MG,AS NEEDED EVERYDAY
     Route: 048
     Dates: start: 20060101
  4. ULTRAM [Suspect]
  5. NITROFURANTOIN [Suspect]
  6. METOPROLOL [Concomitant]
     Indication: HYPERTENSION
  7. METOPROLOL [Concomitant]
     Indication: CARDIAC DISORDER
  8. NEXIUM [Concomitant]
     Indication: GASTRIC DISORDER
     Dosage: 20 MG, 1X/DAY
     Route: 048
  9. LAXATIVES [Concomitant]
  10. AMBIEN [Concomitant]
     Indication: SLEEP DISORDER
     Route: 048
  11. LORAZEPAM [Concomitant]
     Indication: PAIN
     Dosage: ONE TABLET EVERY 6 HOURS AS NEEDED
     Route: 048
  12. LORAZEPAM [Concomitant]
     Indication: ANXIETY
  13. REGLAN [Concomitant]
     Indication: NAUSEA
     Dosage: ONE TABLET EVERY 6 HOURS AS NEEDED
     Route: 048
  14. ACETYLSALICYLIC ACID [Concomitant]
     Dosage: UNK
     Route: 048
  15. COMBIVENT [Concomitant]
     Indication: DYSPNOEA
     Dosage: UNK
     Route: 055
  16. ETANERCEPT [Concomitant]
     Dosage: 100 MG, WEEKLY
     Route: 058
  17. NITROGLYCERIN [Concomitant]
     Dosage: 0.4 MG, ONE TABLET SUBLINGUALLY EVERY 5 MINUTES AS NEEDED
     Route: 060
  18. SALBUTAMOL [Concomitant]
     Indication: DYSPNOEA
     Dosage: 0.01 EACH INHALATION EVERY 4 HOURS AS NEEDED
     Route: 055
  19. SENOKOT [Concomitant]
     Dosage: 8.6 MG, 2X/DAY
     Route: 048
  20. TOPROL-XL [Concomitant]
     Dosage: 100 MG, 1X/DAY
     Route: 048
  21. ZONEGRAN [Suspect]
     Dosage: UNK
     Route: 048
  22. NITROFURANTOIN [Concomitant]

REACTIONS (30)
  - ANXIETY [None]
  - BALANCE DISORDER [None]
  - BLEPHAROSPASM [None]
  - CHRONIC OBSTRUCTIVE PULMONARY DISEASE [None]
  - CORONARY ARTERY DISEASE [None]
  - DIZZINESS [None]
  - DRUG HYPERSENSITIVITY [None]
  - EMPHYSEMA [None]
  - FEAR [None]
  - HYPERHIDROSIS [None]
  - ILL-DEFINED DISORDER [None]
  - INCORRECT DOSE ADMINISTERED [None]
  - INSOMNIA [None]
  - LOSS OF CONSCIOUSNESS [None]
  - LOWER LIMB FRACTURE [None]
  - MICROCYTIC ANAEMIA [None]
  - MYOCARDIAL INFARCTION [None]
  - NAUSEA [None]
  - NEURALGIA [None]
  - OSTEONECROSIS [None]
  - PACEMAKER GENERATED RHYTHM [None]
  - PAIN [None]
  - PALPITATIONS [None]
  - POST LAMINECTOMY SYNDROME [None]
  - POST PROCEDURAL INFECTION [None]
  - PRESYNCOPE [None]
  - PROSTATE CANCER [None]
  - SEPSIS [None]
  - URINARY TRACT INFECTION [None]
  - URTICARIA [None]
